FAERS Safety Report 14305666 (Version 1)
Quarter: 2017Q4

REPORT INFORMATION
  Report Type: Spontaneous
  Country: US (occurrence: US)
  Receive Date: 20171219
  Receipt Date: 20171219
  Transmission Date: 20180321
  Serious: Yes (Hospitalization)
  Sender: FDA-Public Use
  Company Number: US-OTSUKA-BMS-2015-011911

PATIENT
  Sex: Female

DRUGS (1)
  1. ABILIFY [Suspect]
     Active Substance: ARIPIPRAZOLE
     Indication: BIPOLAR DISORDER
     Dosage: 1 DF, UNK; 8MG FOUR TIMES A WEEK AND  6MG THREE TIMES A WEEK
     Route: 065
     Dates: end: 2013

REACTIONS (2)
  - Dizziness [Unknown]
  - Mania [Unknown]
